FAERS Safety Report 13411829 (Version 2)
Quarter: 2017Q4

REPORT INFORMATION
  Report Type: Spontaneous
  Country: US (occurrence: US)
  Receive Date: 20170406
  Receipt Date: 20171123
  Transmission Date: 20180320
  Serious: No
  Sender: FDA-Public Use
  Company Number: US-JNJFOC-20170304006

PATIENT
  Age: 12 Year
  Sex: Male

DRUGS (4)
  1. RISPERDAL [Suspect]
     Active Substance: RISPERIDONE
     Indication: AFFECTIVE DISORDER
     Dosage: AT VARYING DOSE OF 0.25 MG, 0.5 MG AND UNSPECIFIED DOSE
     Route: 048
     Dates: start: 20020429, end: 20040202
  2. REMERON [Suspect]
     Active Substance: MIRTAZAPINE
     Indication: PRODUCT USED FOR UNKNOWN INDICATION
     Dosage: AT VARYING DOSE OF 0.25 MG TO 0.5 MG
     Route: 065
  3. RISPERDAL [Suspect]
     Active Substance: RISPERIDONE
     Indication: ATTENTION DEFICIT/HYPERACTIVITY DISORDER
     Dosage: AT VARYING DOSE OF 0.25 MG, 0.5 MG AND UNSPECIFIED DOSE
     Route: 048
     Dates: start: 20020429, end: 20040202
  4. RISPERDAL [Suspect]
     Active Substance: RISPERIDONE
     Indication: IRLEN SYNDROME
     Dosage: AT VARYING DOSE OF 0.25 MG, 0.5 MG AND UNSPECIFIED DOSE
     Route: 048
     Dates: start: 20020429, end: 20040202

REACTIONS (5)
  - Weight increased [Unknown]
  - Off label use [Unknown]
  - Emotional disorder [Unknown]
  - Product use in unapproved indication [Unknown]
  - Gynaecomastia [Unknown]

NARRATIVE: CASE EVENT DATE: 20020429
